FAERS Safety Report 16230287 (Version 3)
Quarter: 2020Q1

REPORT INFORMATION
  Report Type: Report from Study
  Country: DE (occurrence: DE)
  Receive Date: 20190423
  Receipt Date: 20200308
  Transmission Date: 20200409
  Serious: Yes (Hospitalization)
  Sender: FDA-Public Use
  Company Number: DE-BIOGEN-2018BI00641108

PATIENT
  Age: 55 Year
  Sex: Male

DRUGS (5)
  1. TECFIDERA [Suspect]
     Active Substance: DIMETHYL FUMARATE
     Indication: MULTIPLE SCLEROSIS
     Route: 050
     Dates: start: 20180905, end: 20180912
  2. TECFIDERA [Suspect]
     Active Substance: DIMETHYL FUMARATE
     Dosage: 120MG IN THE MORNING, 240 MG IN THE EVENING
     Route: 050
     Dates: start: 20180922, end: 20180929
  3. TECFIDERA [Suspect]
     Active Substance: DIMETHYL FUMARATE
     Route: 050
     Dates: start: 20180913, end: 20180921
  4. TECFIDERA [Suspect]
     Active Substance: DIMETHYL FUMARATE
     Route: 048
     Dates: start: 20180905
  5. TECFIDERA [Suspect]
     Active Substance: DIMETHYL FUMARATE
     Route: 050
     Dates: start: 20180930

REACTIONS (6)
  - Gastritis haemorrhagic [Recovered/Resolved]
  - Off label use [Recovered/Resolved]
  - Gastric cyst [Recovered/Resolved]
  - Gastric disorder [Recovered/Resolved]
  - Erythema [Recovered/Resolved]
  - Sleep disorder [Recovered/Resolved]

NARRATIVE: CASE EVENT DATE: 20180905
